FAERS Safety Report 6417947-7 (Version None)
Quarter: 2009Q4

REPORT INFORMATION
  Report Type: 
  Country: None (occurrence: None)
  Receive Date: 20091028
  Receipt Date: 20091023
  Transmission Date: 20100525
  Serious: Yes (Death)
  Sender: FDA-Public Use
  Company Number: CHNY2009JP03535

PATIENT
  Age: 87 Year
  Sex: Female

DRUGS (6)
  1. PURSENNID (NCH) [Suspect]
     Indication: PREMEDICATION
     Route: 048
  2. PURSENNID (NCH) [Suspect]
     Indication: X-RAY WITH CONTRAST LOWER GASTROINTESTINAL TRACT
  3. RAKISOBERON [Suspect]
  4. LAXOBERON [Concomitant]
     Indication: X-RAY WITH CONTRAST LOWER GASTROINTESTINAL TRACT
     Route: 048
  5. PACLITAXEL [Concomitant]
     Dosage: WEEKLY
  6. GASTROGRAFIN [Concomitant]
     Indication: ENEMA ADMINISTRATION

REACTIONS (3)
  - HYDRONEPHROSIS [None]
  - INTESTINAL PERFORATION [None]
  - URETERIC OBSTRUCTION [None]
